FAERS Safety Report 4652842-5 (Version None)
Quarter: 2005Q2

REPORT INFORMATION
  Report Type: 
  Country: None (occurrence: None)
  Receive Date: 20050502
  Receipt Date: 20050427
  Transmission Date: 20051028
  Serious: Yes (Death)
  Sender: FDA-Public Use
  Company Number: 2005-127760-NL

PATIENT
  Age: 89 Year
  Sex: Female

DRUGS (9)
  1. MIRTAZAPINE [Suspect]
     Dosage: 15 MG, ORAL
     Route: 048
     Dates: start: 20040426, end: 20040827
  2. MIRTAZAPINE [Suspect]
     Dosage: 15 MG, ORAL
     Route: 048
     Dates: start: 20040801, end: 20040910
  3. RISPERIDONE [Suspect]
     Dosage: MG, ORAL
     Route: 048
     Dates: start: 20040420, end: 20040910
  4. BUSPIRONE HCL [Suspect]
     Dosage: 15 MG, ORAL
     Route: 048
     Dates: start: 20040503, end: 20040910
  5. GALANTAMINE [Suspect]
     Dosage: MG/24 MG, ORAL
     Route: 048
     Dates: start: 20040427, end: 20040509
  6. GALANTAMINE [Suspect]
     Dosage: MG/24 MG, ORAL
     Route: 048
     Dates: start: 20040510, end: 20040910
  7. VALPROATE SODIUM [Suspect]
     Dosage: MG, ORAL
     Route: 048
     Dates: start: 20040501, end: 20040910
  8. PARAGAR [Suspect]
     Dosage: 10 MG
     Dates: start: 20040301, end: 20040910
  9. ESCITALOPRAM [Suspect]
     Dosage: 10 MG

REACTIONS (8)
  - AGITATION [None]
  - ATRIAL FIBRILLATION [None]
  - BLOOD PRESSURE FLUCTUATION [None]
  - COMA [None]
  - HEART RATE IRREGULAR [None]
  - HEMIPARESIS [None]
  - HYPERTENSION [None]
  - SALIVARY HYPERSECRETION [None]
